FAERS Safety Report 4906861-1 (Version None)
Quarter: 2006Q1

REPORT INFORMATION
  Report Type: 
  Country: None (occurrence: None)
  Receive Date: 20060207
  Receipt Date: 20060201
  Transmission Date: 20060701
  Serious: Yes (Other)
  Sender: FDA-Public Use
  Company Number: 200610379GDS

PATIENT
  Age: 50 Year
  Sex: Male

DRUGS (1)
  1. VARDENAFIL [Suspect]
     Indication: SEXUAL DYSFUNCTION
     Dosage: 10 MG, ONCE, ORAL
     Route: 048

REACTIONS (3)
  - ATRIAL FIBRILLATION [None]
  - NO REACTION ON PREVIOUS EXPOSURE TO DRUG [None]
  - SELF-MEDICATION [None]
